FAERS Safety Report 10271387 (Version 1)
Quarter: 2014Q1

REPORT INFORMATION
  Report Type: Spontaneous
  Country: US (occurrence: None)
  Receive Date: 20140306
  Receipt Date: 20140306
  Transmission Date: 20141002
  Serious: Yes (Hospitalization)
  Sender: FDA-Public Use
  Company Number: 163-21880-13083814

PATIENT
  Age: 66 Year
  Sex: Male
  Weight: 100.7 kg

DRUGS (4)
  1. REVLIMID ( LENALIDOMIDE) (10 MILLIGRAM, CAPSULES) [Suspect]
     Indication: PLASMA CELL MYELOMA
     Dosage: 10 MG, 1 IN 1 D, PO
     Route: 048
     Dates: start: 201207
  2. ATENOLOL ( ATENOLOL) (TABLETS) [Concomitant]
  3. AMLODIPINE-BENAZEPRIL ( AMLODIPINE BESYLATE) [Concomitant]
  4. ISOSORBIDE ( ISOSORBIDE) (TABLETS) [Concomitant]

REACTIONS (1)
  - Thrombosis [None]
